FAERS Safety Report 5030197-4 (Version None)
Quarter: 2006Q2

REPORT INFORMATION
  Report Type: 
  Country: None (occurrence: None)
  Receive Date: 20060620
  Receipt Date: 20060615
  Transmission Date: 20061013
  Serious: Yes (Hospitalization)
  Sender: FDA-Public Use
  Company Number: 2006UW12920

PATIENT

DRUGS (2)
  1. NEXIUM [Suspect]
     Route: 048
  2. UNKNOWN CARDIAC MEDICATION [Suspect]

REACTIONS (1)
  - ARRHYTHMIA [None]
